FAERS Safety Report 6515760-3 (Version None)
Quarter: 2009Q4

REPORT INFORMATION
  Report Type: 
  Country: None (occurrence: None)
  Receive Date: 20091223
  Receipt Date: 20091201
  Transmission Date: 20100525
  Serious: Yes (Death, Other)
  Sender: FDA-Public Use
  Company Number: US-BAYER-200941985GPV

PATIENT
  Age: 49 Year
  Sex: Female

DRUGS (4)
  1. REFLUDAN [Suspect]
     Indication: ANTICOAGULANT THERAPY
     Route: 065
  2. PREDNISONE [Concomitant]
     Indication: IMMUNOSUPPRESSION
  3. RITUXIMAB [Concomitant]
     Indication: IMMUNOSUPPRESSION
  4. PLASMA EXCHANGES [Concomitant]
     Indication: DRUG USE FOR UNKNOWN INDICATION

REACTIONS (7)
  - CARDIO-RESPIRATORY ARREST [None]
  - DEEP VEIN THROMBOSIS [None]
  - PULMONARY INFARCTION [None]
  - RENAL INFARCT [None]
  - RESPIRATORY FAILURE [None]
  - SPLENIC INFARCTION [None]
  - UPPER GASTROINTESTINAL HAEMORRHAGE [None]
